FAERS Safety Report 8601947 (Version 5)
Quarter: 2013Q2

REPORT INFORMATION
  Report Type: Spontaneous
  Country: US (occurrence: US)
  Receive Date: 20120606
  Receipt Date: 20130502
  Transmission Date: 20140414
  Serious: Yes (Hospitalization)
  Sender: FDA-Public Use
  Company Number: US-ELI_LILLY_AND_COMPANY-US201205010155

PATIENT
  Age: 78 Year
  Sex: Female

DRUGS (2)
  1. FORTEO [Suspect]
     Indication: OSTEOPOROSIS
     Dosage: 20 U, QD
     Route: 058
     Dates: start: 20120112
  2. FORTEO [Suspect]
     Dosage: 20 U, QD
     Route: 058
     Dates: end: 20130420

REACTIONS (9)
  - Patella fracture [Recovered/Resolved]
  - Tibia fracture [Recovered/Resolved]
  - Fall [Recovered/Resolved]
  - Fall [Recovered/Resolved]
  - Myalgia [Recovered/Resolved]
  - Spinal column stenosis [Unknown]
  - Neuropathy peripheral [Unknown]
  - Injection site erythema [Recovering/Resolving]
  - Injection site swelling [Recovered/Resolved]
